FAERS Safety Report 15982880 (Version 1)
Quarter: 2019Q1

REPORT INFORMATION
  Report Type: Spontaneous
  Country: FR (occurrence: FR)
  Receive Date: 20190219
  Receipt Date: 20190219
  Transmission Date: 20190418
  Serious: Yes (Other)
  Sender: FDA-Public Use
  Company Number: FR-009507513-1809FRA011096

PATIENT
  Sex: Male

DRUGS (1)
  1. PROPECIA [Suspect]
     Active Substance: FINASTERIDE
     Dosage: UNK

REACTIONS (71)
  - Adrenal insufficiency [Unknown]
  - Testicular pain [Unknown]
  - Amnesia [Unknown]
  - Anxiety [Unknown]
  - Dizziness [Unknown]
  - Circadian rhythm sleep disorder [Unknown]
  - Nervous system disorder [Unknown]
  - Food intolerance [Unknown]
  - Abdominal distension [Unknown]
  - Ear discomfort [Unknown]
  - Skin irritation [Unknown]
  - Erectile dysfunction [Unknown]
  - Sexual dysfunction [Unknown]
  - Hypogonadism [Unknown]
  - Slow speech [Unknown]
  - Tachycardia [Unknown]
  - Photophobia [Unknown]
  - Multiple allergies [Unknown]
  - Hypopituitarism [Unknown]
  - Infertility [Unknown]
  - Varicocele [Unknown]
  - Muscle spasms [Unknown]
  - Feeling abnormal [Unknown]
  - Speech disorder [Unknown]
  - Extrasystoles [Unknown]
  - Acute stress disorder [Unknown]
  - Pollakiuria [Unknown]
  - Myalgia [Unknown]
  - Narcolepsy [Unknown]
  - Body temperature decreased [Unknown]
  - Hypotension [Unknown]
  - Breath odour [Unknown]
  - Alcohol intolerance [Unknown]
  - Acne [Unknown]
  - Adverse event [Unknown]
  - Urinary incontinence [Unknown]
  - Heart rate increased [Unknown]
  - Exploding head syndrome [Unknown]
  - Skin fissures [Unknown]
  - Testicular retraction [Unknown]
  - Anhedonia [Unknown]
  - Depersonalisation/derealisation disorder [Unknown]
  - Dyspnoea [Unknown]
  - Thyroid disorder [Unknown]
  - Diarrhoea [Unknown]
  - Nerve injury [Unknown]
  - Tinnitus [Unknown]
  - Muscle atrophy [Unknown]
  - Penile curvature [Unknown]
  - Ejaculation disorder [Unknown]
  - Vomiting [Unknown]
  - Headache [Unknown]
  - Lacrimation decreased [Unknown]
  - Prostatitis [Unknown]
  - Dysuria [Unknown]
  - Chest discomfort [Unknown]
  - Suicidal ideation [Unknown]
  - Skin odour abnormal [Unknown]
  - Fatigue [Unknown]
  - Attention deficit/hyperactivity disorder [Unknown]
  - Dysbacteriosis [Unknown]
  - Dry skin [Unknown]
  - Osteoporosis [Unknown]
  - Loss of libido [Unknown]
  - Penile size reduced [Unknown]
  - Gynaecomastia [Unknown]
  - Nausea [Unknown]
  - Swelling face [Unknown]
  - Asthenia [Unknown]
  - Folliculitis [Unknown]
  - Alopecia [Unknown]
